FAERS Safety Report 6332831-5 (Version None)
Quarter: 2009Q3

REPORT INFORMATION
  Report Type: 
  Country: None (occurrence: None)
  Receive Date: 20090828
  Receipt Date: 20090818
  Transmission Date: 20100115
  Serious: Yes (Hospitalization)
  Sender: FDA-Public Use
  Company Number: JP-WATSON-2009-06668

PATIENT
  Sex: Male

DRUGS (8)
  1. RAPAFLO [Suspect]
     Indication: BENIGN PROSTATIC HYPERPLASIA
     Dosage: 4 MG, BID
     Route: 048
     Dates: start: 20090723, end: 20090731
  2. ATELEC [Concomitant]
     Indication: HYPERTENSION
     Dosage: UNK
     Route: 048
  3. OLMETEC [Concomitant]
     Indication: HYPERTENSION
     Dosage: UNK
     Route: 048
  4. CARDENALIN [Concomitant]
     Indication: HYPERTENSION
     Dosage: UNK
     Route: 048
  5. HERBESSER [Concomitant]
     Indication: HYPERTENSION
     Dosage: UNK
     Route: 065
  6. LIPITOR [Concomitant]
     Indication: DRUG USE FOR UNKNOWN INDICATION
     Dosage: UNK
     Route: 048
  7. GLUFAST [Concomitant]
     Indication: DIABETES MELLITUS
     Dosage: UNK
     Route: 048
  8. ALDACTONE [Concomitant]
     Indication: DRUG USE FOR UNKNOWN INDICATION
     Dosage: UNK
     Route: 048

REACTIONS (3)
  - ALTERED STATE OF CONSCIOUSNESS [None]
  - FALL [None]
  - HYPOTENSION [None]
